FAERS Safety Report 4569742-1 (Version None)
Quarter: 2005Q1

REPORT INFORMATION
  Report Type: 
  Country: None (occurrence: None)
  Receive Date: 20050131
  Receipt Date: 20050118
  Transmission Date: 20050727
  Serious: Yes (Disabling)
  Sender: FDA-Public Use
  Company Number: 2004UW25661

PATIENT
  Age: 61 Year
  Sex: Male
  Weight: 110.2241 kg

DRUGS (1)
  1. CRESTOR [Suspect]
     Indication: HYPERLIPIDAEMIA
     Dates: end: 20041209

REACTIONS (5)
  - AUTOIMMUNE DISORDER [None]
  - BLOOD TEST ABNORMAL [None]
  - GLOMERULONEPHRITIS MEMBRANOUS [None]
  - NEOPLASM MALIGNANT [None]
  - NEPHROTIC SYNDROME [None]
